FAERS Safety Report 8863375 (Version 1)
Quarter: 2012Q4

REPORT INFORMATION
  Report Type: 
  Country: US (occurrence: US)
  Receive Date: 20121025
  Receipt Date: 20121025
  Transmission Date: 20130627
  Serious: Yes (Hospitalization, Other)
  Sender: FDA-Public Use
  Company Number: US-CUBIST-2012S1000834

PATIENT
  Age: 40 Year
  Sex: Male
  Weight: 65 kg

DRUGS (14)
  1. CUBICIN [Suspect]
     Indication: STAPHYLOCOCCAL INFECTION
     Route: 065
  2. VANCOMYCIN [Concomitant]
     Indication: STAPHYLOCOCCAL INFECTION
     Route: 065
  3. VANCOMYCIN [Concomitant]
     Indication: STAPHYLOCOCCAL INFECTION
     Route: 065
  4. VANCOMYCIN [Concomitant]
     Indication: STAPHYLOCOCCAL INFECTION
     Route: 042
  5. RIFAMPIN [Concomitant]
     Indication: STAPHYLOCOCCAL INFECTION
     Route: 065
  6. GENTAMICIN [Concomitant]
     Indication: STAPHYLOCOCCAL INFECTION
     Route: 065
  7. GENTAMICIN [Concomitant]
     Indication: STAPHYLOCOCCAL INFECTION
     Route: 042
  8. CEFEPIME [Concomitant]
     Indication: STAPHYLOCOCCAL INFECTION
     Route: 065
  9. IMIPENEM [Concomitant]
     Indication: PRODUCT USED FOR UNKNOWN INDICATION
     Route: 065
  10. LINEZOLID [Concomitant]
     Indication: PRODUCT USED FOR UNKNOWN INDICATION
     Route: 065
  11. LINEZOLID [Concomitant]
     Indication: PRODUCT USED FOR UNKNOWN INDICATION
     Route: 065
  12. SULFAMETHOXAZOLE W/TRIMETHOPRIM [Concomitant]
     Indication: PRODUCT USED FOR UNKNOWN INDICATION
     Route: 065
  13. SULFAMETHOXAZOLE W/TRIMETHOPRIM [Concomitant]
     Indication: PRODUCT USED FOR UNKNOWN INDICATION
     Route: 065
  14. DOXYCYCLINE [Concomitant]
     Route: 048

REACTIONS (8)
  - Multi-organ failure [Unknown]
  - Cardiac failure [Unknown]
  - Thrombocytopenia [Unknown]
  - Streptococcal bacteraemia [Recovered/Resolved]
  - Device related infection [Recovered/Resolved]
  - Systemic candida [Recovered/Resolved]
  - Treatment failure [Unknown]
  - Renal failure [Unknown]
